FAERS Safety Report 4277472-9 (Version None)
Quarter: 2004Q1

REPORT INFORMATION
  Report Type: 
  Country: None (occurrence: None)
  Receive Date: 20040122
  Receipt Date: 20030407
  Transmission Date: 20041129
  Serious: Yes (Hospitalization)
  Sender: FDA-Public Use
  Company Number: WAES 0304USA00820

PATIENT
  Age: 75 Year
  Sex: Female
  Weight: 59 kg

DRUGS (5)
  1. TYLENOL [Concomitant]
     Dates: start: 19950101
  2. ESTRADIOL [Concomitant]
     Indication: MENOPAUSE
  3. SYNTHROID [Concomitant]
     Indication: HYPERTHYROIDISM
  4. VIOXX [Suspect]
     Indication: OSTEOARTHRITIS
     Route: 048
     Dates: start: 19980101, end: 20000101
  5. VIOXX [Suspect]
     Route: 048
     Dates: start: 19980101, end: 20000101

REACTIONS (1)
  - MYOCARDIAL INFARCTION [None]
